FAERS Safety Report 8588911-7 (Version None)
Quarter: 2012Q3

REPORT INFORMATION
  Report Type: 
  Country: None (occurrence: None)
  Receive Date: 20120813
  Receipt Date: 20120806
  Transmission Date: 20120928
  Serious: Yes (Death, Other)
  Sender: FDA-Public Use
  Company Number: US-BRISTOL-MYERS SQUIBB COMPANY-16568123

PATIENT
  Age: 46 Year
  Sex: Female

DRUGS (1)
  1. DASATINIB [Suspect]
     Indication: CHRONIC MYELOID LEUKAEMIA
     Dosage: INTERRUPTED ON FEB2008 RESTARTED WITH LOW DOSE(20MG ORAL BID)+ INCREASED THE DOSE(70MG ORAL BID)
     Route: 048
     Dates: start: 20050706, end: 20080304

REACTIONS (2)
  - NEOPLASM MALIGNANT [None]
  - PULMONARY ARTERIAL HYPERTENSION [None]
